FAERS Safety Report 13931902 (Version 3)
Quarter: 2018Q1

REPORT INFORMATION
  Report Type: Report from Study
  Country: FR (occurrence: FR)
  Receive Date: 20170904
  Receipt Date: 20180222
  Transmission Date: 20180508
  Serious: Yes (Hospitalization)
  Sender: FDA-Public Use
  Company Number: FR-ROCHE-1853694

PATIENT
  Age: 60 Year
  Sex: Female
  Weight: 50 kg

DRUGS (15)
  1. COBIMETINIB. [Suspect]
     Active Substance: COBIMETINIB
     Indication: METASTASES TO CENTRAL NERVOUS SYSTEM
     Dosage: D1C1?LAST DOSE PRIOR TO SAE: 10/NOV/2016
     Route: 048
     Dates: start: 20160805, end: 20160816
  2. COBIMETINIB. [Suspect]
     Active Substance: COBIMETINIB
     Route: 048
     Dates: start: 20160830, end: 20160902
  3. VEMURAFENIB. [Suspect]
     Active Substance: VEMURAFENIB
     Dosage: D1C1?LAST DOSE PRIOR TO SAE10/NOV/2016
     Route: 048
     Dates: start: 20160830, end: 20160902
  4. VEMURAFENIB. [Suspect]
     Active Substance: VEMURAFENIB
     Dosage: D1C1?LAST DOSE PRIOR TO SAE10/NOV/2016
     Route: 048
     Dates: start: 20160914, end: 20160918
  5. COBIMETINIB. [Suspect]
     Active Substance: COBIMETINIB
     Route: 048
     Dates: start: 20160905, end: 20160910
  6. OXYCONTIN [Concomitant]
     Active Substance: OXYCODONE HYDROCHLORIDE
     Indication: PAIN
  7. COBIMETINIB. [Suspect]
     Active Substance: COBIMETINIB
     Route: 048
     Dates: start: 20160914, end: 20160918
  8. LYRICA [Concomitant]
     Active Substance: PREGABALIN
     Indication: PAIN
     Route: 065
     Dates: start: 20161110
  9. CORTANCYL [Concomitant]
     Active Substance: PREDNISONE
     Route: 065
     Dates: start: 20161110
  10. VEMURAFENIB. [Suspect]
     Active Substance: VEMURAFENIB
     Dosage: D1C1?LAST DOSE PRIOR TO SAE10/NOV/2016
     Route: 048
     Dates: start: 20160905, end: 20160910
  11. RIVOTRIL [Concomitant]
     Active Substance: CLONAZEPAM
     Indication: BLOOD THYROID STIMULATING HORMONE INCREASED
     Route: 065
     Dates: start: 20161112
  12. PRIVIGEN [Concomitant]
     Active Substance: HUMAN IMMUNOGLOBULIN G
     Route: 065
     Dates: start: 20170108, end: 20170308
  13. VEMURAFENIB. [Suspect]
     Active Substance: VEMURAFENIB
     Indication: METASTASES TO CENTRAL NERVOUS SYSTEM
     Dosage: D1C1?LAST DOSE PRIOR TO SAE10/NOV/2016
     Route: 048
     Dates: start: 20160805, end: 20160816
  14. OXYNORM [Concomitant]
     Active Substance: OXYCODONE HYDROCHLORIDE
     Indication: PAIN
     Route: 065
     Dates: start: 20161110
  15. LEVOTHYROX [Concomitant]
     Active Substance: LEVOTHYROXINE
     Route: 065
     Dates: start: 20161110

REACTIONS (1)
  - Neuralgia [Recovered/Resolved]

NARRATIVE: CASE EVENT DATE: 20161110
